FAERS Safety Report 9593519 (Version 2)
Quarter: 2014Q3

REPORT INFORMATION
  Report Type: Report from Study
  Country: US (occurrence: US)
  Receive Date: 20131004
  Receipt Date: 20140808
  Transmission Date: 20150326
  Serious: No
  Sender: FDA-Public Use
  Company Number: US-ALEXION-A201301422

PATIENT

DRUGS (1)
  1. SOLIRIS [Suspect]
     Active Substance: ECULIZUMAB
     Indication: HAEMOLYTIC URAEMIC SYNDROME
     Dosage: UNK
     Dates: start: 20130606

REACTIONS (5)
  - Oropharyngeal pain [Recovered/Resolved]
  - Blister [Recovering/Resolving]
  - Musculoskeletal discomfort [Unknown]
  - Limb discomfort [Unknown]
  - Muscle strain [Recovering/Resolving]

NARRATIVE: CASE EVENT DATE: 20130616
